FAERS Safety Report 22142991 (Version 1)
Quarter: 2023Q1

REPORT INFORMATION
  Report Type: Spontaneous
  Country: US (occurrence: US)
  Receive Date: 20230327
  Receipt Date: 20230327
  Transmission Date: 20230418
  Serious: No
  Sender: FDA-Public Use
  Company Number: US-TAKEDA-2023TUS030463

PATIENT
  Sex: Male

DRUGS (1)
  1. DEXILANT [Suspect]
     Active Substance: DEXLANSOPRAZOLE
     Indication: Gastrooesophageal reflux disease
     Dosage: 60 MILLIGRAM
     Route: 065

REACTIONS (4)
  - Product use issue [Unknown]
  - Extra dose administered [Unknown]
  - Incorrect product administration duration [Unknown]
  - No adverse event [Unknown]
